FAERS Safety Report 12274259 (Version 1)
Quarter: 2016Q2

REPORT INFORMATION
  Report Type: Spontaneous
  Country: US (occurrence: US)
  Receive Date: 20160415
  Receipt Date: 20160415
  Transmission Date: 20160815
  Serious: No
  Sender: FDA-Public Use
  Company Number: US-ALLERGAN-1510040US

PATIENT
  Age: 65 Year
  Sex: Female

DRUGS (2)
  1. LATISSE [Suspect]
     Active Substance: BIMATOPROST
     Dosage: 1 GTT TO EACH UPPER EYELID DAILY AT NIGHT, QD
     Route: 003
     Dates: start: 2012, end: 20150408
  2. LATISSE [Suspect]
     Active Substance: BIMATOPROST
     Indication: GROWTH OF EYELASHES
     Dosage: 1 GTT TO EACH UPPER EYELID DAILY AT NIGHT, QD
     Route: 003
     Dates: start: 20150409

REACTIONS (9)
  - Eyelid sensory disorder [Not Recovered/Not Resolved]
  - Erythema [Not Recovered/Not Resolved]
  - Hair growth abnormal [Not Recovered/Not Resolved]
  - Seasonal allergy [Not Recovered/Not Resolved]
  - Drug ineffective [Unknown]
  - Abnormal sensation in eye [Not Recovered/Not Resolved]
  - Medication error [Unknown]
  - Ocular hyperaemia [Not Recovered/Not Resolved]
  - Eye irritation [Not Recovered/Not Resolved]

NARRATIVE: CASE EVENT DATE: 201504
